FAERS Safety Report 7898770-3 (Version None)
Quarter: 2011Q4

REPORT INFORMATION
  Report Type: 
  Country: None (occurrence: None)
  Receive Date: 20111107
  Receipt Date: 20111027
  Transmission Date: 20120403
  Serious: Yes (Hospitalization, Other)
  Sender: FDA-Public Use
  Company Number: BR-MEDIMMUNE-MEDI-0013765

PATIENT
  Sex: Female

DRUGS (3)
  1. GEVITAL [Concomitant]
  2. FERROUS SULFATE TAB [Concomitant]
  3. SYNAGIS [Suspect]
     Indication: BRONCHOPULMONARY DYSPLASIA
     Dates: start: 20110801, end: 20110801

REACTIONS (7)
  - HYPOPHAGIA [None]
  - RESPIRATORY TRACT INFECTION [None]
  - DYSPNOEA [None]
  - COUGH [None]
  - ASTHENIA [None]
  - PNEUMONIA [None]
  - DEHYDRATION [None]
